FAERS Safety Report 6414954-5 (Version None)
Quarter: 2009Q4

REPORT INFORMATION
  Report Type: 
  Country: None (occurrence: None)
  Receive Date: 20091026
  Receipt Date: 20090406
  Transmission Date: 20100525
  Serious: No
  Sender: FDA-Public Use
  Company Number: US-ABBOTT-09P-163-0567056-00

PATIENT
  Sex: Female
  Weight: 73.094 kg

DRUGS (1)
  1. LUPRON DEPOT [Suspect]
     Indication: ENDOMETRIOSIS
     Route: 050
     Dates: start: 20090312

REACTIONS (3)
  - DEPRESSION [None]
  - HOT FLUSH [None]
  - MIGRAINE [None]
